FAERS Safety Report 25430529 (Version 2)
Quarter: 2025Q3

REPORT INFORMATION
  Report Type: Spontaneous
  Country: US (occurrence: US)
  Receive Date: 20250612
  Receipt Date: 20250707
  Transmission Date: 20251021
  Serious: Yes (Death, Other)
  Sender: INCYTE
  Company Number: US-INCYTE CORPORATION-2025IN006089

PATIENT
  Age: 91 Year

DRUGS (2)
  1. JAKAFI [Suspect]
     Active Substance: RUXOLITINIB
     Indication: Polycythaemia vera
     Dosage: 5 MILLIGRAM, QD
  2. JAKAFI [Suspect]
     Active Substance: RUXOLITINIB
     Dosage: 5 MILLIGRAM, BID

REACTIONS (6)
  - Death [Fatal]
  - Fatigue [Unknown]
  - Eating disorder [Unknown]
  - Asthenia [Unknown]
  - Gait disturbance [Unknown]
  - Off label use [Unknown]
